FAERS Safety Report 17040691 (Version 1)
Quarter: 2019Q4

REPORT INFORMATION
  Report Type: Report from Study
  Country: None (occurrence: US)
  Receive Date: 20191117
  Receipt Date: 20191117
  Transmission Date: 20200122
  Serious: Yes (Hospitalization, Other)
  Sender: FDA-Public Use
  Company Number: US-ABBVIE-19K-163-2878767-00

PATIENT
  Age: 80 Year
  Sex: Male

DRUGS (3)
  1. HUMIRA [Suspect]
     Active Substance: ADALIMUMAB
     Route: 058
     Dates: start: 201911
  2. HUMIRA [Suspect]
     Active Substance: ADALIMUMAB
     Route: 058
     Dates: start: 201910, end: 20191101
  3. HUMIRA [Suspect]
     Active Substance: ADALIMUMAB
     Indication: RHEUMATOID ARTHRITIS
     Route: 058
     Dates: start: 20190501, end: 20191019

REACTIONS (13)
  - Joint swelling [Not Recovered/Not Resolved]
  - Blood potassium increased [Unknown]
  - Anaemia [Unknown]
  - Joint stiffness [Not Recovered/Not Resolved]
  - Loss of personal independence in daily activities [Not Recovered/Not Resolved]
  - Bedridden [Not Recovered/Not Resolved]
  - Wheelchair user [Not Recovered/Not Resolved]
  - Arthralgia [Not Recovered/Not Resolved]
  - Renal failure [Unknown]
  - Wound [Unknown]
  - Impaired self-care [Not Recovered/Not Resolved]
  - Hospitalisation [Unknown]
  - Urinary retention [Unknown]

NARRATIVE: CASE EVENT DATE: 2019
